FAERS Safety Report 12755670 (Version 2)
Quarter: 2016Q3

REPORT INFORMATION
  Report Type: Report from Study
  Country: CA (occurrence: CA)
  Receive Date: 20160916
  Receipt Date: 20160926
  Transmission Date: 20161109
  Serious: Yes (Other)
  Sender: FDA-Public Use
  Company Number: CA-REGENERON PHARMACEUTICALS, INC.-2016-21586

PATIENT

DRUGS (3)
  1. EYLEA [Suspect]
     Active Substance: AFLIBERCEPT
     Indication: RETINAL VEIN OCCLUSION
     Dosage: EVERY 2 MONTHS
     Route: 031
  2. EYLEA [Suspect]
     Active Substance: AFLIBERCEPT
     Dosage: EVERY MONTH
     Route: 031
     Dates: start: 20160825
  3. EYLEA [Suspect]
     Active Substance: AFLIBERCEPT
     Dosage: EVERY 1.5 MONTHS
     Route: 031
     Dates: start: 20160715

REACTIONS (4)
  - Anxiety [Unknown]
  - Off label use [Unknown]
  - Visual acuity reduced [Unknown]
  - Nervousness [Unknown]

NARRATIVE: CASE EVENT DATE: 20160715
